FAERS Safety Report 10029452 (Version 2)
Quarter: 2014Q2

REPORT INFORMATION
  Report Type: Report from Study
  Country: AR (occurrence: AR)
  Receive Date: 20140322
  Receipt Date: 20140512
  Transmission Date: 20141212
  Serious: Yes (Other)
  Sender: FDA-Public Use
  Company Number: PHHY2014AR034445

PATIENT
  Sex: Female

DRUGS (4)
  1. DIOVAN D [Suspect]
     Indication: BLOOD PRESSURE ABNORMAL
     Dosage: 1 DF(80/12.5MG), DAILY
     Route: 048
     Dates: start: 201312
  2. MONTRATE [Concomitant]
     Dosage: UNK UKN, UNK
  3. SERETIDE [Concomitant]
     Dosage: UNK UKN, UNK
  4. ALPLAX [Concomitant]
     Dosage: UNK UKN, UNK

REACTIONS (2)
  - Asthmatic crisis [Recovered/Resolved]
  - Thyroid neoplasm [Not Recovered/Not Resolved]
